FAERS Safety Report 9717746 (Version 1)
Quarter: 2013Q4

REPORT INFORMATION
  Report Type: Spontaneous
  Country: US (occurrence: US)
  Receive Date: 20131127
  Receipt Date: 20131127
  Transmission Date: 20140711
  Serious: Yes (Other)
  Sender: FDA-Public Use
  Company Number: US-GLAXOSMITHKLINE-A1050268A

PATIENT
  Age: 29 Year
  Sex: Female

DRUGS (2)
  1. LAMICTAL [Suspect]
     Indication: PARALYSIS
     Dosage: 400MG PER DAY
     Route: 065
     Dates: start: 1991, end: 201309
  2. LORAZEPAM [Concomitant]

REACTIONS (2)
  - Stillbirth [Unknown]
  - Exposure during pregnancy [Unknown]
